FAERS Safety Report 7013281-5 (Version None)
Quarter: 2010Q3

REPORT INFORMATION
  Report Type: 
  Country: None (occurrence: None)
  Receive Date: 20100924
  Receipt Date: 20100324
  Transmission Date: 20110219
  Serious: Yes (Hospitalization, Other)
  Sender: FDA-Public Use
  Company Number: PHHO2010GB04232

PATIENT
  Sex: Female

DRUGS (20)
  1. AFINITOR [Suspect]
     Indication: ACUTE MYELOID LEUKAEMIA
     Dosage: UNK
     Route: 048
     Dates: start: 20091222
  2. DAUNORUBICIN HCL [Interacting]
     Indication: ACUTE MYELOID LEUKAEMIA
     Dosage: UNK
     Dates: start: 20091207
  3. ARA-C [Interacting]
     Indication: ACUTE MYELOID LEUKAEMIA
     Dosage: UNK
     Dates: start: 20091207
  4. MYLOTARG [Interacting]
     Indication: ACUTE MYELOID LEUKAEMIA
     Dosage: UNK
     Dates: start: 20091105
  5. LEVOTHYROXINE SODIUM [Concomitant]
  6. CYCLIZINE [Concomitant]
  7. LANSOPRAZOLE [Concomitant]
  8. POSACONAZOLE [Concomitant]
  9. CIPROFLOXACIN [Concomitant]
  10. LACTULOSE [Concomitant]
  11. ACYCLOVIR SODIUM [Concomitant]
  12. SANDO K [Concomitant]
  13. DIFFLAM [Concomitant]
  14. CHLORAMPHENICOL [Concomitant]
  15. GENTAMICIN [Concomitant]
  16. PIPERACILLIN [Concomitant]
  17. SLOW-K [Concomitant]
  18. ACETAMINOPHEN [Concomitant]
  19. SEPTRIN [Concomitant]
  20. TAZOCIN [Concomitant]

REACTIONS (7)
  - CELLULITIS [None]
  - DRUG INTERACTION [None]
  - EYE SWELLING [None]
  - NEUTROPENIA [None]
  - PSEUDOMONAS INFECTION [None]
  - PYREXIA [None]
  - THROMBOCYTOPENIA [None]
